FAERS Safety Report 11150827 (Version 2)
Quarter: 2015Q2

REPORT INFORMATION
  Report Type: Spontaneous
  Country: JP (occurrence: JP)
  Receive Date: 20150601
  Receipt Date: 20150610
  Transmission Date: 20150821
  Serious: Yes (Death)
  Sender: FDA-Public Use
  Company Number: JP-SA-2015SA071194

PATIENT
  Sex: Female
  Weight: 50 kg

DRUGS (1)
  1. FABRAZYME [Suspect]
     Active Substance: AGALSIDASE BETA
     Indication: FABRY^S DISEASE
     Dosage: DOSE: 50 MG/DOSE
     Route: 042
     Dates: start: 20040611

REACTIONS (2)
  - Cardiac hypertrophy [Not Recovered/Not Resolved]
  - Ventricular fibrillation [Fatal]

NARRATIVE: CASE EVENT DATE: 20150512
